FAERS Safety Report 5199102-4 (Version None)
Quarter: 2006Q4

REPORT INFORMATION
  Report Type: 
  Country: None (occurrence: None)
  Receive Date: 20061016
  Receipt Date: 20060618
  Transmission Date: 20070319
  Serious: No
  Sender: FDA-Public Use
  Company Number: 2006SP002190

PATIENT
  Age: 84 Year
  Weight: 68.0396 kg

DRUGS (6)
  1. LUNESTA [Suspect]
     Indication: INSOMNIA
     Dosage: SEE IMAGE
     Route: 048
     Dates: start: 20060501, end: 20060601
  2. LUNESTA [Suspect]
     Indication: INSOMNIA
     Dosage: SEE IMAGE
     Route: 048
     Dates: start: 20060601, end: 20060617
  3. TYLENOL [Concomitant]
  4. ATENOLOL [Concomitant]
  5. LOTREL [Concomitant]
  6. NEXIUM [Concomitant]

REACTIONS (3)
  - DRUG INEFFECTIVE [None]
  - INSOMNIA [None]
  - SOMNOLENCE [None]
